FAERS Safety Report 14267594 (Version 1)
Quarter: 2017Q4

REPORT INFORMATION
  Report Type: Spontaneous
  Country: US (occurrence: US)
  Receive Date: 20171211
  Receipt Date: 20171211
  Transmission Date: 20180321
  Serious: Yes (Hospitalization)
  Sender: FDA-Public Use
  Company Number: US-ROCHE-1845597

PATIENT
  Age: 53 Year
  Sex: Male

DRUGS (6)
  1. ACETAMINOPHEN. [Concomitant]
     Active Substance: ACETAMINOPHEN
     Route: 065
     Dates: start: 20160816
  2. METOPROLOL. [Concomitant]
     Active Substance: METOPROLOL
     Route: 065
     Dates: start: 20161004
  3. VALIUM [Suspect]
     Active Substance: DIAZEPAM
     Indication: HEADACHE
     Route: 065
  4. TACROLIMUS. [Suspect]
     Active Substance: TACROLIMUS
     Indication: LIVER TRANSPLANT
     Route: 048
     Dates: start: 20160805, end: 20161006
  5. TACROLIMUS. [Suspect]
     Active Substance: TACROLIMUS
     Dosage: REGIMEN 2
     Route: 048
     Dates: start: 20161006
  6. CERTICAN [Suspect]
     Active Substance: EVEROLIMUS
     Indication: LIVER TRANSPLANT
     Route: 048
     Dates: start: 20160812

REACTIONS (1)
  - Confusional state [Recovering/Resolving]

NARRATIVE: CASE EVENT DATE: 20161006
